FAERS Safety Report 11373458 (Version 1)
Quarter: 2015Q3

REPORT INFORMATION
  Report Type: Spontaneous
  Country: ES (occurrence: None)
  Receive Date: 20150811
  Receipt Date: 20150811
  Transmission Date: 20151125
  Serious: Yes (Hospitalization)
  Sender: FDA-Public Use
  Company Number: POI0581201500014

PATIENT
  Age: 65 Year
  Sex: Male

DRUGS (1)
  1. AZASAN [Suspect]
     Active Substance: AZATHIOPRINE
     Indication: CROHN^S DISEASE
     Dates: start: 2014, end: 2014

REACTIONS (6)
  - Diarrhoea [None]
  - Hypotension [None]
  - Pancreatitis acute [None]
  - Hidradenitis [None]
  - Drug reaction with eosinophilia and systemic symptoms [None]
  - Vomiting [None]

NARRATIVE: CASE EVENT DATE: 201412
